FAERS Safety Report 9648287 (Version 1)
Quarter: 2013Q4

REPORT INFORMATION
  Report Type: Report from Study
  Country: US (occurrence: US)
  Receive Date: 20131028
  Receipt Date: 20131028
  Transmission Date: 20140711
  Serious: Yes (Other)
  Sender: FDA-Public Use
  Company Number: US-JNJFOC-20131012798

PATIENT
  Sex: Female

DRUGS (3)
  1. REMICADE [Suspect]
     Indication: RHEUMATOID ARTHRITIS
     Dosage: FIRST INFUSION WHICH WAS BEGUN 4 TO 5 YEARS AGO FROM THE TIME OF THIS REPORT
     Route: 042
  2. METHOTREXATE [Concomitant]
     Route: 065
  3. ETANERCEPT [Concomitant]
     Route: 065

REACTIONS (1)
  - Loss of consciousness [Recovered/Resolved]
